FAERS Safety Report 20959135 (Version 2)
Quarter: 2022Q3

REPORT INFORMATION
  Report Type: Spontaneous
  Country: AT (occurrence: AT)
  Receive Date: 20220614
  Receipt Date: 20220705
  Transmission Date: 20221027
  Serious: Yes (Life-Threatening, Other)
  Sender: FDA-Public Use
  Company Number: AT-AMGEN-AUTSP2022100208

PATIENT
  Age: 16 Year
  Sex: Female

DRUGS (14)
  1. BLINCYTO [Suspect]
     Active Substance: BLINATUMOMAB
     Indication: Acute lymphocytic leukaemia
     Dosage: 5 MICROGRAM/ METERSQUARE/DAY FOR 1-3 DAYS
     Route: 065
  2. BLINCYTO [Suspect]
     Active Substance: BLINATUMOMAB
     Dosage: 15 MICROGRAM/ METERSQUARE/DAY FOR 4-28 DAYS
     Route: 065
  3. ETOPOSIDE [Concomitant]
     Active Substance: ETOPOSIDE
     Indication: Acute lymphocytic leukaemia
     Dosage: 60 MILLIGRAM/KG
  4. FLUDARABINE [Concomitant]
     Active Substance: FLUDARABINE PHOSPHATE
     Dosage: 25 MILLIGRAM/M2/DAY, D-6 TO D-3
     Route: 065
  5. TREOSULFAN [Concomitant]
     Active Substance: TREOSULFAN
     Dosage: 10 MILLIGRAM/M2/DAY, D-6 TO D-4
  6. THIOTEPA [Concomitant]
     Active Substance: THIOTEPA
     Dosage: 8 MILLIGRAM/KG/DAY, D-2.
     Route: 065
  7. CYCLOPHOSPHAMIDE [Concomitant]
     Active Substance: CYCLOPHOSPHAMIDE
     Indication: Prophylaxis against graft versus host disease
     Dosage: 250 MILLIGRAM/M2/DAY ON DAY 1
     Route: 065
  8. CYCLOPHOSPHAMIDE [Concomitant]
     Active Substance: CYCLOPHOSPHAMIDE
     Dosage: UNK
     Route: 065
  9. MYCOPHENOLATE MOFETIL [Concomitant]
     Active Substance: MYCOPHENOLATE MOFETIL
     Indication: Prophylaxis against graft versus host disease
     Route: 065
  10. TACROLIMUS [Concomitant]
     Active Substance: TACROLIMUS
     Indication: Prophylaxis against graft versus host disease
     Route: 065
  11. DEXAMETHASONE [Concomitant]
     Active Substance: DEXAMETHASONE
     Dosage: 6 MILLIGRAM/M2/ DAY FOR 5 DAYS
     Route: 065
  12. MERCAPTOPURINE [Concomitant]
     Active Substance: MERCAPTOPURINE
     Dosage: 60 MILLIGRAM/M2/DAY ON DAYS 1 TO 14
     Route: 065
  13. CYTARABINE [Concomitant]
     Active Substance: CYTARABINE
     Dosage: 75 MILLIGRAM/M2/DAY ON DAYS 3 TO 6 AND DAY 10 TO 13
     Route: 065
  14. METHOTREXATE [Concomitant]
     Active Substance: METHOTREXATE
     Dosage: 12 MILLIGRAM ON DAY 10

REACTIONS (16)
  - Acute graft versus host disease in skin [Recovering/Resolving]
  - Acute lymphocytic leukaemia recurrent [Recovered/Resolved]
  - Gastric perforation [Unknown]
  - Cholecystitis chronic [Unknown]
  - Impaired gastric emptying [Unknown]
  - Hepatic infection fungal [Unknown]
  - Cerebral fungal infection [Unknown]
  - Febrile neutropenia [Unknown]
  - Sepsis [Unknown]
  - Pneumonia fungal [Unknown]
  - BK virus infection [Recovered/Resolved]
  - Viral haemorrhagic cystitis [Recovered/Resolved]
  - Cytokine release syndrome [Unknown]
  - Transplant failure [Unknown]
  - Human herpesvirus 6 infection reactivation [Recovered/Resolved]
  - Human herpesvirus 7 infection [Recovered/Resolved]
